FAERS Safety Report 4638816-9 (Version None)
Quarter: 2005Q2

REPORT INFORMATION
  Report Type: 
  Country: None (occurrence: None)
  Receive Date: 20050328
  Receipt Date: 20050222
  Transmission Date: 20051028
  Serious: No
  Sender: FDA-Public Use
  Company Number: USA050291509

PATIENT
  Age: 66 Year
  Sex: Female

DRUGS (1)
  1. STRATTERA [Suspect]
     Indication: RESTLESSNESS
     Dosage: 60 MG DAY
     Dates: start: 20050215

REACTIONS (3)
  - ANOREXIA [None]
  - INSOMNIA [None]
  - SOMNOLENCE [None]
